FAERS Safety Report 19945791 (Version 2)
Quarter: 2021Q4

REPORT INFORMATION
  Report Type: Spontaneous
  Country: CA (occurrence: CA)
  Receive Date: 20211012
  Receipt Date: 20211102
  Transmission Date: 20220303
  Serious: Yes (Other)
  Sender: FDA-Public Use
  Company Number: CA-ASTRAZENECA-2021A753732

PATIENT
  Age: 73 Year
  Sex: Male

DRUGS (8)
  1. ATENOLOL [Suspect]
     Active Substance: ATENOLOL
     Dosage: UNK
  2. ATENOLOL [Suspect]
     Active Substance: ATENOLOL
     Dosage: UNK
  3. FUROSEMIDE [Suspect]
     Active Substance: FUROSEMIDE
     Dosage: UNK
  4. FUROSEMIDE [Suspect]
     Active Substance: FUROSEMIDE
     Dosage: UNK
  5. CANDESARTAN [Suspect]
     Active Substance: CANDESARTAN
     Dosage: UNK
  6. CANDESARTAN [Suspect]
     Active Substance: CANDESARTAN
     Dosage: UNK
  7. DEXAMETHASONE [Suspect]
     Active Substance: DEXAMETHASONE
     Dosage: UNK
  8. DEXAMETHASONE [Suspect]
     Active Substance: DEXAMETHASONE
     Dosage: UNK

REACTIONS (3)
  - Acute kidney injury [Unknown]
  - Hypotension [Unknown]
  - Adrenal insufficiency [Unknown]
